FAERS Safety Report 4845926-X (Version None)
Quarter: 2005Q4

REPORT INFORMATION
  Report Type: 
  Country: None (occurrence: None)
  Receive Date: 20051206
  Receipt Date: 20051128
  Transmission Date: 20060501
  Serious: Yes (Death, Other)
  Sender: FDA-Public Use
  Company Number: JP-BRISTOL-MYERS SQUIBB COMPANY-13194097

PATIENT
  Age: 23 Year
  Sex: Male

DRUGS (6)
  1. BLEOMYCIN [Suspect]
     Indication: LYMPHOMA
     Route: 042
     Dates: start: 20050922, end: 20050922
  2. ONCOVIN [Suspect]
     Indication: MALIGNANT MELANOMA
     Route: 042
     Dates: start: 20050922, end: 20050922
  3. DIFLUCAN [Suspect]
     Route: 042
  4. FOY [Suspect]
     Route: 042
  5. SOLU-CORTEF [Concomitant]
     Indication: PROPHYLAXIS
     Route: 042
     Dates: start: 20050922, end: 20050922
  6. KYTRIL [Concomitant]
     Route: 042
     Dates: start: 20050922, end: 20050922

REACTIONS (5)
  - BLOOD PRESSURE DECREASED [None]
  - CONVULSION [None]
  - DISSEMINATED INTRAVASCULAR COAGULATION [None]
  - LOSS OF CONSCIOUSNESS [None]
  - PYREXIA [None]
